FAERS Safety Report 13646928 (Version 1)
Quarter: 2017Q2

REPORT INFORMATION
  Report Type: Spontaneous
  Country: US (occurrence: US)
  Receive Date: 20170613
  Receipt Date: 20170613
  Transmission Date: 20170830
  Serious: Yes (Disabling, Other)
  Sender: FDA-Public Use
  Company Number: None

PATIENT
  Age: 46 Year
  Sex: Female
  Weight: 62.2 kg

DRUGS (8)
  1. HUMIRA [Suspect]
     Active Substance: ADALIMUMAB
     Indication: CROHN^S DISEASE
     Dates: start: 20161108, end: 20170216
  2. PREDNISONE. [Concomitant]
     Active Substance: PREDNISONE
  3. ALEVE [Concomitant]
     Active Substance: NAPROXEN SODIUM
  4. MULTIVITIMIN [Concomitant]
     Active Substance: VITAMINS
  5. TYLENOL [Concomitant]
     Active Substance: ACETAMINOPHEN
  6. PLAQUINIL [Concomitant]
  7. FAMOTIDINE. [Concomitant]
     Active Substance: FAMOTIDINE
  8. VITIMIN D [Concomitant]

REACTIONS (10)
  - Joint swelling [None]
  - Gait disturbance [None]
  - Pain [None]
  - Arthralgia [None]
  - Myalgia [None]
  - Neuropathy peripheral [None]
  - Paraesthesia [None]
  - Loss of personal independence in daily activities [None]
  - Musculoskeletal stiffness [None]
  - Peripheral swelling [None]

NARRATIVE: CASE EVENT DATE: 20161215
